FAERS Safety Report 5003297-2 (Version None)
Quarter: 2006Q2

REPORT INFORMATION
  Report Type: 
  Country: None (occurrence: None)
  Receive Date: 20060511
  Receipt Date: 20060505
  Transmission Date: 20061013
  Serious: Yes (Death)
  Sender: FDA-Public Use
  Company Number: 200611848GDS

PATIENT

DRUGS (5)
  1. APROTININ [Suspect]
     Indication: HEART TRANSPLANT
  2. APROTININ [Suspect]
     Indication: MEDICAL DEVICE IMPLANTATION
  3. APROTININ [Suspect]
     Indication: MITRAL VALVE REPAIR
  4. PROTAMINE [Concomitant]
  5. HEPARIN [Concomitant]

REACTIONS (3)
  - PULMONARY ARTERIAL PRESSURE INCREASED [None]
  - PULMONARY MICROEMBOLI [None]
  - PULMONARY THROMBOSIS [None]
